FAERS Safety Report 8336083-6 (Version None)
Quarter: 2012Q2

REPORT INFORMATION
  Report Type: 
  Country: None (occurrence: None)
  Receive Date: 20120501
  Receipt Date: 20120501
  Transmission Date: 20120825
  Serious: Yes (Hospitalization)
  Sender: FDA-Public Use
  Company Number: None

PATIENT
  Age: 68 Year
  Sex: Female
  Weight: 58.6 kg

DRUGS (18)
  1. COREG [Concomitant]
  2. BUMEX [Concomitant]
  3. THYROID TAB [Concomitant]
  4. PLAVIX [Suspect]
     Indication: CORONARY ARTERY DISEASE
     Dosage: 75MG DAILY PO CHRONIC
     Route: 048
  5. ZANAFLEX [Concomitant]
  6. POLYETHYLENE GLUCOL [Concomitant]
  7. FOLIC ACID [Concomitant]
  8. XANAX [Concomitant]
  9. LORTAB [Concomitant]
  10. NITROGLYCERIN [Concomitant]
  11. PROBIOTIC [Concomitant]
  12. THYROID TAB [Concomitant]
  13. COUMADIN [Suspect]
     Indication: CORONARY ARTERY DISEASE
     Dosage: 6MG QPM PO CHRONIC
     Route: 048
  14. COUMADIN [Suspect]
     Indication: MITRAL VALVE INCOMPETENCE
     Dosage: 6MG QPM PO CHRONIC
     Route: 048
  15. LIPITOR [Concomitant]
  16. ASPIRIN [Suspect]
     Indication: CORONARY ARTERY DISEASE
     Dosage: 81MG DAILY PO CHRONIC
     Route: 048
  17. CYMBALTA [Concomitant]
  18. ALDACTONE [Concomitant]

REACTIONS (2)
  - LARGE INTESTINAL ULCER [None]
  - LARGE INTESTINAL HAEMORRHAGE [None]
